FAERS Safety Report 22299050 (Version 1)
Quarter: 2023Q2

REPORT INFORMATION
  Report Type: Spontaneous
  Country: MX (occurrence: MX)
  Receive Date: 20230509
  Receipt Date: 20230509
  Transmission Date: 20230722
  Serious: Yes (Other)
  Sender: FDA-Public Use
  Company Number: MX-MYLANLABS-2023M1047587

PATIENT
  Age: 50 Year
  Sex: Female

DRUGS (7)
  1. PREGABALIN [Suspect]
     Active Substance: PREGABALIN
     Indication: Fibromyalgia
     Dosage: 75 MILLIGRAM, BID (PREGABALIN 75MG TWICE A DAY)
     Route: 065
     Dates: start: 2005
  2. PREGABALIN [Suspect]
     Active Substance: PREGABALIN
     Dosage: 75 MILLIGRAM, TID (PREGABALIN 75MG THREE TIMES PER DAY)
     Route: 065
  3. PREGABALIN [Suspect]
     Active Substance: PREGABALIN
     Dosage: 150 MILLIGRAM, TID (PREGABALIN 150MG THREE TIMES PER DAY)
     Route: 065
  4. TRAMADOL [Concomitant]
     Active Substance: TRAMADOL
     Indication: Fibromyalgia
     Dosage: UNK
     Route: 065
  5. DESVENLAFAXINE [Concomitant]
     Active Substance: DESVENLAFAXINE
     Indication: Fibromyalgia
     Dosage: UNK
     Route: 065
  6. ZOLMITRIPTAN [Concomitant]
     Active Substance: ZOLMITRIPTAN
     Indication: Migraine
     Dosage: 2.5 MILLIGRAM, PRN (ZOLMITRIPTAN 2.5 MG AS NEEDED)
     Route: 065
     Dates: start: 2005
  7. HYDROCHLOROTHIAZIDE\VALSARTAN [Concomitant]
     Active Substance: HYDROCHLOROTHIAZIDE\VALSARTAN
     Indication: Product used for unknown indication
     Dosage: UNK, QD (VALSARTAN/HYDROCHLOROTHIAZIDE 80 MG/12.5MG DAILY)
     Route: 065

REACTIONS (4)
  - Weight increased [Recovered/Resolved]
  - Generalised oedema [Recovered/Resolved]
  - Oedema [Recovered/Resolved]
  - Hypotension [Unknown]
